FAERS Safety Report 23698274 (Version 1)
Quarter: 2024Q2

REPORT INFORMATION
  Report Type: Spontaneous
  Country: US (occurrence: None)
  Receive Date: 20240402
  Receipt Date: 20240402
  Transmission Date: 20240716
  Serious: Yes (Hospitalization, Other)
  Sender: FDA-Public Use
  Company Number: None

PATIENT
  Age: 32 Year
  Sex: Female
  Weight: 68.4 kg

DRUGS (2)
  1. MOXIFLOXACIN [Suspect]
     Active Substance: MOXIFLOXACIN
     Indication: Ureaplasma infection
     Dates: start: 20240307, end: 20240313
  2. MAGNESIUM [Concomitant]
     Active Substance: MAGNESIUM

REACTIONS (12)
  - Rash [None]
  - Urticaria [None]
  - Paraesthesia [None]
  - Hypoaesthesia [None]
  - Hypoaesthesia [None]
  - Hyperhidrosis [None]
  - Pain [None]
  - Gait disturbance [None]
  - Oropharyngeal discomfort [None]
  - Sensation of foreign body [None]
  - Feeling of body temperature change [None]
  - Vision blurred [None]

NARRATIVE: CASE EVENT DATE: 20240317
